FAERS Safety Report 11619749 (Version 2)
Quarter: 2015Q4

REPORT INFORMATION
  Report Type: Spontaneous
  Country: US (occurrence: US)
  Receive Date: 20151012
  Receipt Date: 20151030
  Transmission Date: 20160304
  Serious: Yes (Other)
  Sender: FDA-Public Use
  Company Number: US-SMITH AND NEPHEW, INC-2015SMT00372

PATIENT
  Sex: Male

DRUGS (1)
  1. REGRANEX [Suspect]
     Active Substance: BECAPLERMIN
     Indication: SKIN ULCER
     Dosage: UNK, 1X/DAY
     Route: 061
     Dates: start: 201508, end: 20150925

REACTIONS (8)
  - Drug ineffective for unapproved indication [Unknown]
  - Peripheral circulatory failure [Unknown]
  - Application site necrosis [Unknown]
  - Application site pain [Unknown]
  - Wound complication [Unknown]
  - Device occlusion [Unknown]
  - Thrombosis [Unknown]
  - Inappropriate schedule of drug administration [Unknown]

NARRATIVE: CASE EVENT DATE: 2015
